FAERS Safety Report 17795739 (Version 1)
Quarter: 2020Q2

REPORT INFORMATION
  Report Type: Spontaneous
  Country: GB (occurrence: GB)
  Receive Date: 20200516
  Receipt Date: 20200516
  Transmission Date: 20200714
  Serious: Yes (Other)
  Sender: FDA-Public Use
  Company Number: NVSC2020GB130454

PATIENT
  Age: 2 Month
  Sex: Male

DRUGS (6)
  1. ONEALFA [Suspect]
     Active Substance: ALFACALCIDOL
     Indication: HYPOPARATHYROIDISM
     Dosage: 1500 NG, QD, 300NG/KG
     Route: 065
  2. CALCIUM [Suspect]
     Active Substance: CALCIUM
     Indication: HYPERPARATHYROIDISM
     Dosage: 48 MMOL, QD
     Route: 048
  3. CALCIUM GLUCONATE. [Concomitant]
     Active Substance: CALCIUM GLUCONATE
     Dosage: 0.11 MMOL/KG
     Route: 040
  4. CALCIUM [Suspect]
     Active Substance: CALCIUM
     Indication: HYPOCALCAEMIC SEIZURE
     Dosage: 12 MMOL, QD
     Route: 048
  5. ONEALFA [Suspect]
     Active Substance: ALFACALCIDOL
     Indication: HYPOCALCAEMIC SEIZURE
     Dosage: 400-1500 NG/DAY, DOSE INCREASE
     Route: 065
  6. CALCIUM GLUCONATE. [Concomitant]
     Active Substance: CALCIUM GLUCONATE
     Indication: HYPOCALCAEMIC SEIZURE
     Dosage: 1?2 MMOL/KG/DAY
     Route: 065

REACTIONS (4)
  - Drug resistance [Unknown]
  - Product administered to patient of inappropriate age [Unknown]
  - Hypocalcaemic seizure [Unknown]
  - Hypercalcaemia [Unknown]
